FAERS Safety Report 12542749 (Version 1)
Quarter: 2016Q3

REPORT INFORMATION
  Report Type: Report from Study
  Country: US (occurrence: US)
  Receive Date: 20160709
  Receipt Date: 20160709
  Transmission Date: 20161109
  Serious: Yes (Other)
  Sender: FDA-Public Use
  Company Number: US-AMGEN-USASL2016086689

PATIENT
  Age: 61 Year
  Sex: Female

DRUGS (1)
  1. PROLIA [Suspect]
     Active Substance: DENOSUMAB
     Indication: BONE LOSS
     Dosage: UNK, Q6MO
     Route: 065
     Dates: start: 2015

REACTIONS (2)
  - Bone cancer [Unknown]
  - Off label use [Unknown]

NARRATIVE: CASE EVENT DATE: 2015
